FAERS Safety Report 4765318-1 (Version None)
Quarter: 2005Q3

REPORT INFORMATION
  Report Type: 
  Country: None (occurrence: None)
  Receive Date: 20050906
  Receipt Date: 20050824
  Transmission Date: 20060218
  Serious: Yes (Disabling)
  Sender: FDA-Public Use
  Company Number: 2005108209

PATIENT
  Age: 19 Year
  Sex: Male

DRUGS (2)
  1. FELDENE [Suspect]
     Indication: LOCAL SWELLING
     Dosage: ORAL
     Route: 048
     Dates: start: 20020701
  2. VIBRAMYCIN [Suspect]
     Indication: LOCAL SWELLING
     Dosage: ORAL
     Route: 048

REACTIONS (17)
  - ABDOMINAL DISTENSION [None]
  - ABNORMAL FAECES [None]
  - ANXIETY [None]
  - DISTURBANCE IN ATTENTION [None]
  - EPISTAXIS [None]
  - ERUCTATION [None]
  - FATIGUE [None]
  - FEELING ABNORMAL [None]
  - FLATULENCE [None]
  - GASTROINTESTINAL CANDIDIASIS [None]
  - GASTROINTESTINAL INFECTION [None]
  - INFLUENZA LIKE ILLNESS [None]
  - IRRITABLE BOWEL SYNDROME [None]
  - MALAISE [None]
  - MUSCLE TWITCHING [None]
  - RETCHING [None]
  - SKIN INFLAMMATION [None]
